FAERS Safety Report 22386122 (Version 1)
Quarter: 2023Q2

REPORT INFORMATION
  Report Type: Spontaneous
  Country: CA (occurrence: CA)
  Receive Date: 20230530
  Receipt Date: 20230530
  Transmission Date: 20230721
  Serious: Yes (Disabling)
  Sender: FDA-Public Use
  Company Number: CA-BAUSCH-BL-2023-008074

PATIENT
  Age: 78 Year
  Sex: Female

DRUGS (10)
  1. DEXAMETHASONE [Suspect]
     Active Substance: DEXAMETHASONE
     Indication: Non-Hodgkin^s lymphoma
     Route: 042
  2. CISPLATIN\PACLITAXEL [Suspect]
     Active Substance: CISPLATIN\PACLITAXEL
     Indication: Non-Hodgkin^s lymphoma
     Route: 042
  3. CISPLATIN\PACLITAXEL [Suspect]
     Active Substance: CISPLATIN\PACLITAXEL
     Route: 048
  4. CYCLOPHOSPHAMIDE\DOXORUBICIN\PREDNISONE\RITUXIMAB\VINCRISTINE [Suspect]
     Active Substance: CYCLOPHOSPHAMIDE\DOXORUBICIN\PREDNISONE\RITUXIMAB\VINCRISTINE
     Indication: Non-Hodgkin^s lymphoma
     Dosage: CYCLOPHOSPHAMIDE;DOXORUBICIN HYDROCHLORIDE;PREDNISONE;RITUXIMAB;VINCRISTINE SULFATE
     Route: 065
  5. GEMCITABINE [Suspect]
     Active Substance: GEMCITABINE
     Indication: Non-Hodgkin^s lymphoma
     Route: 042
  6. GEMCITABINE [Suspect]
     Active Substance: GEMCITABINE
     Route: 048
  7. KYMRIAH [Suspect]
     Active Substance: TISAGENLECLEUCEL
     Indication: Non-Hodgkin^s lymphoma
     Route: 065
  8. KYMRIAH [Suspect]
     Active Substance: TISAGENLECLEUCEL
     Indication: Diffuse large B-cell lymphoma
     Dosage: DISPERSION FOR INFUSION
     Route: 042
  9. PACLITAXEL [Suspect]
     Active Substance: PACLITAXEL
     Indication: Diffuse large B-cell lymphoma
     Dosage: LIQUID?INTRAVENOUS
     Route: 048
  10. EPIRUBICIN [Suspect]
     Active Substance: EPIRUBICIN
     Indication: Non-Hodgkin^s lymphoma
     Dosage: SOLUTION?INTRAVENOUS
     Route: 048

REACTIONS (3)
  - Second primary malignancy [Not Recovered/Not Resolved]
  - Acute monocytic leukaemia [Not Recovered/Not Resolved]
  - White blood cell count increased [Not Recovered/Not Resolved]
